FAERS Safety Report 4329019-6 (Version None)
Quarter: 2004Q1

REPORT INFORMATION
  Report Type: 
  Country: None (occurrence: None)
  Receive Date: 20040329
  Receipt Date: 20031209
  Transmission Date: 20041129
  Serious: No
  Sender: FDA-Public Use
  Company Number: 03P-163-0244652-00

PATIENT
  Sex: Male

DRUGS (6)
  1. HUMIRA [Suspect]
     Indication: RHEUMATOID ARTHRITIS
     Dosage: 40 MG, 1 IN 2 WK, SUBCUTANEOUS
     Route: 058
     Dates: start: 20030901
  2. AMLODIPINE BESYLATE [Concomitant]
  3. BOSARTAN POTASSIUM [Concomitant]
  4. CALCIUM [Concomitant]
  5. GLUCOSAMINE [Concomitant]
  6. MULTIVITAMIN [Concomitant]

REACTIONS (1)
  - RASH [None]
